FAERS Safety Report 7155821-1 (Version None)
Quarter: 2010Q4

REPORT INFORMATION
  Report Type: 
  Country: None (occurrence: None)
  Receive Date: 20101123
  Receipt Date: 20100812
  Transmission Date: 20110411
  Serious: No
  Sender: FDA-Public Use
  Company Number: 009965

PATIENT
  Sex: Female

DRUGS (3)
  1. CIMZIA [Suspect]
     Indication: CROHN'S DISEASE
     Dosage: (400 MG 1X/MONTH SUBCUTANEOUS), (400 MG 1X/28 DAYS SUBCUTANEOUS)
     Route: 058
     Dates: start: 20090304
  2. CIMZIA [Suspect]
     Indication: CROHN'S DISEASE
     Dosage: (400 MG 1X/MONTH SUBCUTANEOUS), (400 MG 1X/28 DAYS SUBCUTANEOUS)
     Route: 058
     Dates: start: 20100812
  3. CIMZIA [Suspect]

REACTIONS (4)
  - FATIGUE [None]
  - FREQUENT BOWEL MOVEMENTS [None]
  - SOMNOLENCE [None]
  - THERAPEUTIC RESPONSE DECREASED [None]
